FAERS Safety Report 9736188 (Version 8)
Quarter: 2014Q2

REPORT INFORMATION
  Report Type: Report from Study
  Country: CA (occurrence: CA)
  Receive Date: 20131206
  Receipt Date: 20140424
  Transmission Date: 20141212
  Serious: Yes (Hospitalization, Other)
  Sender: FDA-Public Use
  Company Number: CA-ROCHE-1309549

PATIENT
  Age: 56 Year
  Sex: Female

DRUGS (8)
  1. AVASTIN [Suspect]
     Indication: GLIOBLASTOMA
     Route: 042
     Dates: start: 20131107
  2. AVASTIN [Suspect]
     Route: 042
     Dates: start: 20140210
  3. AVASTIN [Suspect]
     Route: 042
     Dates: start: 20140312, end: 20140326
  4. DECADRON [Suspect]
     Indication: PRODUCT USED FOR UNKNOWN INDICATION
     Dosage: DECREASED OVER TIME WHEN AVASTIN STARTS
     Route: 065
  5. ROSUVASTATIN [Suspect]
     Indication: HYPERTENSION
     Route: 065
     Dates: start: 20131122
  6. ADVIL [Concomitant]
  7. NOVORAPID [Concomitant]
     Indication: DIABETES MELLITUS
     Route: 058
     Dates: start: 20131122
  8. LANTUS [Concomitant]
     Indication: DIABETES MELLITUS
     Route: 058

REACTIONS (10)
  - Diabetic ketoacidosis [Unknown]
  - Asthenia [Unknown]
  - Hypoaesthesia [Unknown]
  - Fall [Unknown]
  - Skin infection [Recovered/Resolved]
  - Diabetes mellitus [Unknown]
  - Hypertension [Unknown]
  - Productive cough [Unknown]
  - Lymphocyte count decreased [Unknown]
  - Malignant neoplasm progression [Unknown]
